FAERS Safety Report 5963109-7 (Version None)
Quarter: 2008Q4

REPORT INFORMATION
  Report Type: 
  Country: None (occurrence: None)
  Receive Date: 20081124
  Receipt Date: 20081113
  Transmission Date: 20090506
  Serious: Yes (Hospitalization)
  Sender: FDA-Public Use
  Company Number: HR-NOVOPROD-281530

PATIENT
  Age: 59 Year
  Sex: Male

DRUGS (3)
  1. NOVORAPID [Suspect]
     Indication: DIABETES MELLITUS
     Dosage: 60 IU, QD
     Route: 058
     Dates: start: 20051207, end: 20051221
  2. ANDOL [Concomitant]
     Dosage: UNK, UNK
     Route: 048
  3. IRUMED [Concomitant]
     Indication: DIABETES MELLITUS
     Route: 048

REACTIONS (1)
  - VASCULAR PURPURA [None]
